FAERS Safety Report 6999584-9 (Version None)
Quarter: 2010Q3

REPORT INFORMATION
  Report Type: 
  Country: None (occurrence: None)
  Receive Date: 20100920
  Receipt Date: 20100224
  Transmission Date: 20110219
  Serious: No
  Sender: FDA-Public Use
  Company Number: US-ASTRAZENECA-2010SE08074

PATIENT
  Age: 482 Month
  Sex: Male
  Weight: 77.1 kg

DRUGS (1)
  1. SEROQUEL [Suspect]
     Indication: TACHYPHRENIA
     Route: 048
     Dates: start: 20080101, end: 20080101

REACTIONS (3)
  - CONFUSIONAL STATE [None]
  - HANGOVER [None]
  - SOMNOLENCE [None]
